FAERS Safety Report 4874458-8 (Version None)
Quarter: 2005Q4

REPORT INFORMATION
  Report Type: 
  Country: None (occurrence: None)
  Receive Date: 20051201
  Receipt Date: 20050816
  Transmission Date: 20060501
  Serious: No
  Sender: FDA-Public Use
  Company Number: 2005PV001088

PATIENT
  Age: 68 Year
  Sex: Female
  Weight: 81.6475 kg

DRUGS (10)
  1. BYETTA [Suspect]
     Indication: DIABETES MELLITUS NON-INSULIN-DEPENDENT
     Dosage: 5 MCG;BID;SC
     Route: 058
     Dates: start: 20050701
  2. ISOSORBIDE [Concomitant]
  3. METFORMIN [Concomitant]
  4. NORVASC [Concomitant]
  5. ZOCOR [Concomitant]
  6. QUINAPRIL [Concomitant]
  7. BACTRIM [Concomitant]
  8. ADVAIR DISKUS 250/50 [Concomitant]
  9. ALBUTEROL [Concomitant]
  10. REGULAR INSULIN [Concomitant]

REACTIONS (4)
  - FEELING HOT [None]
  - PRURITUS [None]
  - URTICARIA [None]
  - WEIGHT DECREASED [None]
